FAERS Safety Report 9231862 (Version 1)
Quarter: 2013Q2

REPORT INFORMATION
  Report Type: Spontaneous
  Country: BR (occurrence: BR)
  Receive Date: 20130415
  Receipt Date: 20130415
  Transmission Date: 20140414
  Serious: Yes (Hospitalization, Other)
  Sender: FDA-Public Use
  Company Number: BR-PFIZER INC-2013114634

PATIENT
  Age: 59 Year
  Sex: Male
  Weight: 84 kg

DRUGS (1)
  1. LIPITOR [Suspect]
     Indication: BLOOD CHOLESTEROL
     Dosage: UNK
     Route: 048
     Dates: start: 20101213

REACTIONS (5)
  - Convulsion [Unknown]
  - Syncope [Unknown]
  - Cardiac arrest [Unknown]
  - Aortic aneurysm [Unknown]
  - Heart valve calcification [Unknown]
